FAERS Safety Report 20299572 (Version 1)
Quarter: 2022Q1

REPORT INFORMATION
  Report Type: Spontaneous
  Country: CO (occurrence: None)
  Receive Date: 20220105
  Receipt Date: 20220105
  Transmission Date: 20220423
  Serious: Yes (Other)
  Sender: FDA-Public Use
  Company Number: 2021A909419

PATIENT
  Sex: Male

DRUGS (2)
  1. QUETIAPINE [Suspect]
     Active Substance: QUETIAPINE
     Route: 048
  2. CERTRALIN [Concomitant]

REACTIONS (4)
  - Suicidal ideation [Unknown]
  - Delirium [Unknown]
  - Depression [Unknown]
  - Agitation [Unknown]
